FAERS Safety Report 5951984-1 (Version None)
Quarter: 2008Q4

REPORT INFORMATION
  Report Type: 
  Country: None (occurrence: None)
  Receive Date: 20081113
  Receipt Date: 20071018
  Transmission Date: 20090506
  Serious: No
  Sender: FDA-Public Use
  Company Number: A0688487A

PATIENT
  Age: 70 Year
  Sex: Female

DRUGS (12)
  1. COREG [Suspect]
     Dosage: 25MG TWICE PER DAY
     Route: 048
  2. INSPRA [Concomitant]
  3. ACIPHEX [Concomitant]
  4. KLONOPIN [Concomitant]
  5. MEVACOR [Concomitant]
  6. OMACOR [Concomitant]
  7. ZETIA [Concomitant]
  8. LASIX [Concomitant]
  9. ZOLOFT [Concomitant]
  10. LANOXIN [Concomitant]
  11. LISINOPRIL [Concomitant]
  12. COUMADIN [Concomitant]

REACTIONS (1)
  - GYNAECOMASTIA [None]
